FAERS Safety Report 5473108-X (Version None)
Quarter: 2007Q4

REPORT INFORMATION
  Report Type: 
  Country: None (occurrence: None)
  Receive Date: 20071001
  Receipt Date: 20070411
  Transmission Date: 20080405
  Serious: No
  Sender: FDA-Public Use
  Company Number: US-ASTRAZENECA-2007UW07095

PATIENT
  Age: 73 Year
  Sex: Female
  Weight: 68 kg

DRUGS (5)
  1. ARIMIDEX [Suspect]
     Indication: BREAST CANCER
     Route: 048
     Dates: start: 20050901
  2. LISINOPRIL [Concomitant]
  3. AMBIEN [Concomitant]
  4. CALCIUM [Concomitant]
  5. CENTRUM SILVER [Concomitant]

REACTIONS (2)
  - ALOPECIA [None]
  - PHARYNGOLARYNGEAL PAIN [None]
